FAERS Safety Report 16831814 (Version 1)
Quarter: 2019Q3

REPORT INFORMATION
  Report Type: Spontaneous
  Country: GB (occurrence: GB)
  Receive Date: 20190920
  Receipt Date: 20190920
  Transmission Date: 20191005
  Serious: Yes (Hospitalization, Other)
  Sender: FDA-Public Use
  Company Number: GB-ACCORD-154992

PATIENT
  Sex: Male

DRUGS (3)
  1. AMITRIPTYLINE [Suspect]
     Active Substance: AMITRIPTYLINE
     Indication: PRODUCT USED FOR UNKNOWN INDICATION
  2. 5F-MDMB-PICA [Suspect]
     Active Substance: 5F-MDMB-PICA
     Indication: PRODUCT USED FOR UNKNOWN INDICATION
     Route: 055
  3. METHADONE [Suspect]
     Active Substance: METHADONE HYDROCHLORIDE
     Indication: PRODUCT USED FOR UNKNOWN INDICATION

REACTIONS (4)
  - Agitation [Recovered/Resolved]
  - Circulatory collapse [Recovering/Resolving]
  - Confusional state [Recovered/Resolved]
  - Seizure [Recovered/Resolved]
